FAERS Safety Report 19105288 (Version 2)
Quarter: 2022Q1

REPORT INFORMATION
  Report Type: Spontaneous
  Country: US (occurrence: US)
  Receive Date: 20210407
  Receipt Date: 20220216
  Transmission Date: 20220423
  Serious: No
  Sender: FDA-Public Use
  Company Number: US-NOVARTISTESTPH-NVSC2021US075882

PATIENT
  Sex: Male
  Weight: 108.84 kg

DRUGS (4)
  1. TREPROSTINIL [Suspect]
     Active Substance: TREPROSTINIL
     Indication: Pulmonary arterial hypertension
     Dosage: 39 NG/KG/MIN (CONTINUOUS)
     Route: 042
     Dates: start: 20210121
  2. TREPROSTINIL [Suspect]
     Active Substance: TREPROSTINIL
     Dosage: 96 NG, CONT
     Route: 042
  3. ADEMPAS [Concomitant]
     Active Substance: RIOCIGUAT
     Indication: Product used for unknown indication
     Route: 065
  4. OPSUMIT [Concomitant]
     Active Substance: MACITENTAN
     Indication: Product used for unknown indication
     Route: 065

REACTIONS (2)
  - Catheter site erythema [Unknown]
  - Gastrooesophageal reflux disease [Unknown]
